FAERS Safety Report 5573543-5 (Version None)
Quarter: 2007Q4

REPORT INFORMATION
  Report Type: 
  Country: None (occurrence: None)
  Receive Date: 20071226
  Receipt Date: 20071214
  Transmission Date: 20080405
  Serious: Yes (Hospitalization)
  Sender: FDA-Public Use
  Company Number: ES-JNJFOC-20071204310

PATIENT
  Age: 43 Year
  Sex: Male

DRUGS (4)
  1. REMICADE [Suspect]
     Indication: CROHN'S DISEASE
     Route: 042
  2. INACID [Concomitant]
     Route: 048
  3. IMUREL [Concomitant]
     Route: 048
  4. OMEPRAZOLE [Concomitant]
     Route: 048

REACTIONS (3)
  - ABSCESS [None]
  - OSTEOARTHRITIS [None]
  - SEPTIC SHOCK [None]
